FAERS Safety Report 7543679-8 (Version None)
Quarter: 2011Q2

REPORT INFORMATION
  Report Type: 
  Country: None (occurrence: None)
  Receive Date: 20110613
  Receipt Date: 20030523
  Transmission Date: 20111010
  Serious: Yes (Hospitalization)
  Sender: FDA-Public Use
  Company Number: PHFR2002GB02664

PATIENT
  Sex: Male

DRUGS (2)
  1. VENLAFAXINE [Concomitant]
     Dosage: 75 MG, QD
     Route: 065
     Dates: start: 19990101
  2. CLOZAPINE [Suspect]
     Indication: SCHIZOPHRENIA
     Dosage: 250 MG, NOCTE
     Route: 048
     Dates: start: 20020401

REACTIONS (3)
  - APPENDICITIS [None]
  - CONSTIPATION [None]
  - ABDOMINAL PAIN [None]
